FAERS Safety Report 4350804-9 (Version None)
Quarter: 2004Q2

REPORT INFORMATION
  Report Type: 
  Country: None (occurrence: None)
  Receive Date: 20040427
  Receipt Date: 20040415
  Transmission Date: 20050107
  Serious: Yes (Other)
  Sender: FDA-Public Use
  Company Number: US042407

PATIENT
  Age: 35 Year
  Sex: Female

DRUGS (6)
  1. ENBREL [Suspect]
     Indication: RHEUMATOID ARTHRITIS
     Dosage: 25 MG, TWICE WEEKLY, SC
     Route: 058
     Dates: start: 20030303, end: 20030601
  2. METHOTREXATE [Concomitant]
  3. CELECOXIB [Concomitant]
  4. FOLIC ACID [Concomitant]
  5. LEVOTHYROXINE SODIUM [Concomitant]
  6. PANTOPRAZOLE SODIUM [Concomitant]

REACTIONS (3)
  - CATARACT SUBCAPSULAR [None]
  - MACULAR OEDEMA [None]
  - VISION BLURRED [None]
